FAERS Safety Report 5877402-X (Version None)
Quarter: 2008Q3

REPORT INFORMATION
  Report Type: 
  Country: None (occurrence: None)
  Receive Date: 20080909
  Receipt Date: 20080820
  Transmission Date: 20090109
  Serious: Yes (Hospitalization)
  Sender: FDA-Public Use
  Company Number: 2008AL005376

PATIENT
  Age: 73 Year
  Sex: Male

DRUGS (3)
  1. DIGOXIN [Suspect]
     Indication: CARDIAC FAILURE CONGESTIVE
     Dosage: PO
     Route: 048
  2. COREG [Concomitant]
  3. AVAPRO [Concomitant]

REACTIONS (4)
  - DYSSTASIA [None]
  - HEART RATE INCREASED [None]
  - TREMOR [None]
  - VENTRICULAR ARRHYTHMIA [None]
